FAERS Safety Report 10582347 (Version 2)
Quarter: 2014Q4

REPORT INFORMATION
  Report Type: Report from Study
  Country: US (occurrence: US)
  Receive Date: 20141113
  Receipt Date: 20141113
  Transmission Date: 20150529
  Serious: Yes (Other)
  Sender: FDA-Public Use
  Company Number: US-SA-2013SA133351

PATIENT
  Age: 61 Year
  Sex: Female

DRUGS (5)
  1. AUBAGIO [Suspect]
     Active Substance: TERIFLUNOMIDE
     Indication: MULTIPLE SCLEROSIS
     Route: 048
     Dates: start: 20130401
  2. AUBAGIO [Suspect]
     Active Substance: TERIFLUNOMIDE
     Indication: MULTIPLE SCLEROSIS
     Route: 048
     Dates: start: 20130918
  3. AUBAGIO [Suspect]
     Active Substance: TERIFLUNOMIDE
     Indication: MULTIPLE SCLEROSIS
     Route: 048
     Dates: start: 20130719
  4. ANTIINFECTIVES [Concomitant]
     Active Substance: UNSPECIFIED INGREDIENT
  5. AMPYRA [Concomitant]
     Active Substance: DALFAMPRIDINE
     Indication: MULTIPLE SCLEROSIS
     Dates: start: 20010101

REACTIONS (13)
  - Chromaturia [Unknown]
  - Headache [Recovered/Resolved]
  - Oropharyngeal pain [Recovered/Resolved]
  - Hydronephrosis [Unknown]
  - Burning sensation [Not Recovered/Not Resolved]
  - Pain in extremity [Not Recovered/Not Resolved]
  - Blood pressure increased [Unknown]
  - Blood urine present [Unknown]
  - Fatigue [Not Recovered/Not Resolved]
  - Nasopharyngitis [Recovered/Resolved]
  - Nephrolithiasis [Unknown]
  - Discomfort [Unknown]
  - Renal pain [Unknown]

NARRATIVE: CASE EVENT DATE: 2013
